FAERS Safety Report 12346870 (Version 1)
Quarter: 2016Q2

REPORT INFORMATION
  Report Type: Spontaneous
  Country: US (occurrence: None)
  Receive Date: 20160506
  Receipt Date: 20160506
  Transmission Date: 20160815
  Serious: No
  Sender: FDA-Public Use
  Company Number: None

PATIENT
  Age: 64 Year
  Sex: Male
  Weight: 120.7 kg

DRUGS (1)
  1. MEMANTINE HYDROCHLORIDE. [Suspect]
     Active Substance: MEMANTINE HYDROCHLORIDE
     Dates: end: 20160414

REACTIONS (5)
  - Hallucination [None]
  - Fall [None]
  - Confusional state [None]
  - Asthenia [None]
  - Pneumonia aspiration [None]

NARRATIVE: CASE EVENT DATE: 20160427
